FAERS Safety Report 20328507 (Version 1)
Quarter: 2022Q1

REPORT INFORMATION
  Report Type: Spontaneous
  Country: US (occurrence: None)
  Receive Date: 20220112
  Receipt Date: 20220112
  Transmission Date: 20220424
  Serious: Yes (Hospitalization)
  Sender: FDA-Public Use
  Company Number: None

PATIENT
  Age: 64 Year
  Sex: Male

DRUGS (1)
  1. ENBREL [Suspect]
     Active Substance: ETANERCEPT
     Indication: Illness
     Dosage: 50MG EVERY 7 DAYS SUBQ?
     Route: 058
     Dates: start: 20210804

REACTIONS (1)
  - Arterial bypass operation [None]

NARRATIVE: CASE EVENT DATE: 20220111
